FAERS Safety Report 17030579 (Version 1)
Quarter: 2019Q4

REPORT INFORMATION
  Report Type: Report from Study
  Country: US (occurrence: US)
  Receive Date: 20191114
  Receipt Date: 20191114
  Transmission Date: 20200122
  Serious: No
  Sender: FDA-Public Use
  Company Number: NVSC2019US035364

PATIENT
  Sex: Male

DRUGS (1)
  1. COSENTYX [Suspect]
     Active Substance: SECUKINUMAB
     Indication: PSORIASIS
     Dosage: 300 MG, QW FOR WEEKS 0, 1, 2, 3, AND 4 THEN Q4W THEREAFTER (BATCH NUMBER NOT REPORETD)
     Route: 058
     Dates: start: 20190918

REACTIONS (2)
  - Therapeutic product effect incomplete [Unknown]
  - Cardiac disorder [Unknown]
